FAERS Safety Report 4503950-0 (Version None)
Quarter: 2004Q4

REPORT INFORMATION
  Report Type: 
  Country: None (occurrence: None)
  Receive Date: 20041112
  Receipt Date: 20041103
  Transmission Date: 20050328
  Serious: Yes (Hospitalization, Other)
  Sender: FDA-Public Use
  Company Number: 2003143478US

PATIENT
  Age: 37 Year
  Sex: Female
  Weight: 120 kg

DRUGS (8)
  1. XANAX [Suspect]
     Indication: PANIC DISORDER
     Dosage: SEE IMAGE
  2. XANAX [Suspect]
     Indication: PANIC DISORDER
     Dosage: SEE IMAGE
  3. XANAX [Suspect]
     Indication: PANIC DISORDER
     Dosage: SEE IMAGE
     Dates: start: 19990519
  4. XANAX [Suspect]
     Indication: PANIC DISORDER
     Dosage: SEE IMAGE
     Dates: start: 19990519
  5. XANAX [Suspect]
     Indication: PANIC DISORDER
     Dosage: SEE IMAGE
     Dates: start: 20000101
  6. NEO-SYNEPHRINE (PHENYLEPHRINE HYDROCHLORIDE) [Suspect]
     Indication: SINUS DISORDER
     Dosage: NASAL
     Route: 045
     Dates: start: 20040430
  7. KEFLEX [Concomitant]
  8. CIPRO [Concomitant]

REACTIONS (41)
  - ABDOMINAL PAIN UPPER [None]
  - ANGER [None]
  - ANXIETY [None]
  - ATROPHY [None]
  - BRAIN SCAN ABNORMAL [None]
  - BRONCHITIS [None]
  - BURNING SENSATION [None]
  - CEREBELLAR SYNDROME [None]
  - CEREBRAL ATROPHY [None]
  - CEREBROVASCULAR ACCIDENT [None]
  - CHEST PAIN [None]
  - COMPUTERISED TOMOGRAM ABNORMAL [None]
  - DEHYDRATION [None]
  - DRUG DEPENDENCE [None]
  - DRUG INTERACTION [None]
  - DRUG WITHDRAWAL SYNDROME [None]
  - DRY MOUTH [None]
  - DYSPNOEA [None]
  - HEADACHE [None]
  - HYPOAESTHESIA [None]
  - MASTITIS [None]
  - MENTAL DISORDER [None]
  - MOOD SWINGS [None]
  - MUSCLE SPASMS [None]
  - NASAL DISCOMFORT [None]
  - NASAL DRYNESS [None]
  - ORAL DISCOMFORT [None]
  - PARAESTHESIA [None]
  - PHARMACEUTICAL PRODUCT COMPLAINT [None]
  - RASH [None]
  - RHINORRHOEA [None]
  - SINUS CONGESTION [None]
  - SINUSITIS [None]
  - TACHYCARDIA [None]
  - TEETH BRITTLE [None]
  - TOOTH DISORDER [None]
  - TREATMENT NONCOMPLIANCE [None]
  - UNEVALUABLE EVENT [None]
  - UPPER RESPIRATORY TRACT INFECTION [None]
  - URTICARIA [None]
  - VITAMIN D DEFICIENCY [None]
